FAERS Safety Report 10744170 (Version 1)
Quarter: 2015Q1

REPORT INFORMATION
  Report Type: Spontaneous
  Country: US (occurrence: None)
  Receive Date: 20150126
  Receipt Date: 20150126
  Transmission Date: 20150721
  Serious: No
  Sender: FDA-Public Use
  Company Number: None

PATIENT
  Age: 68 Year
  Sex: Male
  Weight: 78 kg

DRUGS (1)
  1. BUPROPION [Suspect]
     Active Substance: BUPROPION
     Route: 048
     Dates: start: 20141119, end: 20141122

REACTIONS (7)
  - Vomiting [None]
  - Muscle rigidity [None]
  - Clonus [None]
  - Hyperreflexia [None]
  - Seizure [None]
  - Urinary incontinence [None]
  - Unresponsive to stimuli [None]

NARRATIVE: CASE EVENT DATE: 20141122
